FAERS Safety Report 23248359 (Version 2)
Quarter: 2023Q4

REPORT INFORMATION
  Report Type: Spontaneous
  Country: US (occurrence: US)
  Receive Date: 20231201
  Receipt Date: 20231224
  Transmission Date: 20240110
  Serious: Yes (Hospitalization, Other)
  Sender: FDA-Public Use
  Company Number: US-AUROBINDO-AUR-APL-2023-075018

PATIENT
  Age: 56 Year
  Sex: Male

DRUGS (13)
  1. AMLODIPINE [Suspect]
     Active Substance: AMLODIPINE BESYLATE
     Indication: Hypertension
     Dosage: UNK
     Route: 065
  2. PEMETREXED [Suspect]
     Active Substance: PEMETREXED
     Indication: Lung adenocarcinoma
     Dosage: UNK, COMBINATION THERAPY
     Route: 065
     Dates: start: 202006
  3. PEMETREXED [Suspect]
     Active Substance: PEMETREXED
     Dosage: UNK, COMPLETED 4 CYCLES
     Route: 065
     Dates: start: 202008
  4. PEMETREXED [Suspect]
     Active Substance: PEMETREXED
     Dosage: UNK, 5TH MAINTENANCE DOSE
     Route: 065
     Dates: start: 202009
  5. PEMETREXED [Suspect]
     Active Substance: PEMETREXED
     Dosage: UNK, ADDITIONAL DOSE
     Route: 065
     Dates: start: 202010
  6. VANCOMYCIN [Suspect]
     Active Substance: VANCOMYCIN
     Indication: Clostridium difficile colitis
     Dosage: UNK
     Route: 065
     Dates: start: 2020
  7. PEMBROLIZUMAB [Suspect]
     Active Substance: PEMBROLIZUMAB
     Indication: Lung adenocarcinoma
     Dosage: UNK, COMBINATION THERAPY
     Route: 065
     Dates: start: 202006
  8. PEMBROLIZUMAB [Suspect]
     Active Substance: PEMBROLIZUMAB
     Dosage: UNK, COMPLETED 4 CYCLES
     Route: 065
     Dates: start: 202008
  9. PEMBROLIZUMAB [Suspect]
     Active Substance: PEMBROLIZUMAB
     Dosage: UNK, 5TH MAINTENANCE DOSE
     Route: 065
     Dates: start: 202009
  10. PEMBROLIZUMAB [Suspect]
     Active Substance: PEMBROLIZUMAB
     Dosage: UNK, ADDITIONAL DOSE
     Route: 065
     Dates: start: 202010
  11. CARBOPLATIN [Concomitant]
     Active Substance: CARBOPLATIN
     Indication: Lung adenocarcinoma
     Dosage: UNK
     Route: 065
     Dates: start: 202006
  12. CARBOPLATIN [Concomitant]
     Active Substance: CARBOPLATIN
     Dosage: UNK,  COMBINATION THERAPY 4 CYCLES
     Route: 065
     Dates: start: 202008
  13. PREDNISONE [Suspect]
     Active Substance: PREDNISONE
     Indication: Product used for unknown indication
     Dosage: UNK
     Route: 065

REACTIONS (1)
  - Thrombotic thrombocytopenic purpura [Recovered/Resolved]

NARRATIVE: CASE EVENT DATE: 20200101
